FAERS Safety Report 7893504-0 (Version None)
Quarter: 2011Q4

REPORT INFORMATION
  Report Type: 
  Country: None (occurrence: None)
  Receive Date: 20111104
  Receipt Date: 20111025
  Transmission Date: 20120403
  Serious: Yes (Other)
  Sender: FDA-Public Use
  Company Number: CO-BRISTOL-MYERS SQUIBB COMPANY-16193617

PATIENT

DRUGS (1)
  1. ORENCIA [Suspect]
     Dosage: INFUSION
     Dates: start: 20110804

REACTIONS (1)
  - COUNTERFEIT DRUG ADMINISTERED [None]
